FAERS Safety Report 23788394 (Version 1)
Quarter: 2024Q2

REPORT INFORMATION
  Report Type: Spontaneous
  Country: FR (occurrence: FR)
  Receive Date: 20240426
  Receipt Date: 20240426
  Transmission Date: 20240716
  Serious: Yes (Death, Hospitalization)
  Sender: FDA-Public Use
  Company Number: FR-STRIDES ARCOLAB LIMITED-2024SP004792

PATIENT
  Age: 51 Year
  Sex: Female

DRUGS (1)
  1. PREDNISOLONE [Suspect]
     Active Substance: PREDNISOLONE
     Indication: COVID-19
     Dosage: 50 MILLIGRAM, QD
     Route: 065

REACTIONS (6)
  - Arrhythmia [Fatal]
  - Enterovirus myocarditis [Fatal]
  - Cytokine storm [Fatal]
  - Sudden cardiac death [Fatal]
  - COVID-19 [Fatal]
  - Drug ineffective for unapproved indication [Fatal]
